FAERS Safety Report 7911016-2 (Version None)
Quarter: 2011Q4

REPORT INFORMATION
  Report Type: 
  Country: None (occurrence: None)
  Receive Date: 20111114
  Receipt Date: 20111108
  Transmission Date: 20120403
  Serious: No
  Sender: FDA-Public Use
  Company Number: US-BIOGENIDEC-2011BI042760

PATIENT
  Age: 44 Year
  Sex: Female

DRUGS (1)
  1. TYSABRI [Suspect]
     Indication: MULTIPLE SCLEROSIS
     Route: 042
     Dates: start: 20070622

REACTIONS (6)
  - FALL [None]
  - PERONEAL NERVE PALSY [None]
  - BONE PAIN [None]
  - PAIN IN EXTREMITY [None]
  - PYREXIA [None]
  - RESTLESS LEGS SYNDROME [None]
